FAERS Safety Report 8567789-1 (Version None)
Quarter: 2012Q3

REPORT INFORMATION
  Report Type: 
  Country: None (occurrence: None)
  Receive Date: 20120803
  Receipt Date: 20120724
  Transmission Date: 20120928
  Serious: Yes (Other)
  Sender: FDA-Public Use
  Company Number: JP-AMGEN-JPNCT2012048474

PATIENT
  Age: 68 Year
  Sex: Female
  Weight: 56 kg

DRUGS (8)
  1. JUSO [Concomitant]
     Indication: DIABETIC NEPHROPATHY
     Dosage: UNK
     Route: 048
  2. ASPENON [Concomitant]
     Dosage: UNK
     Route: 048
  3. DARBEPOETIN ALFA - KHK [Suspect]
     Indication: NEPHROGENIC ANAEMIA
     Dosage: 6 MUG, Q4WK
     Route: 058
     Dates: start: 20110620
  4. LANSOPRAZOLE [Concomitant]
     Dosage: UNK
     Route: 048
  5. LANTUS [Concomitant]
     Indication: DIABETIC NEPHROPATHY
     Dosage: UNK
     Route: 065
  6. HUMALOG [Concomitant]
     Indication: DIABETIC NEPHROPATHY
     Dosage: UNK
     Route: 065
  7. PRECIPITATED CALCIUM CARBONATE [Concomitant]
     Indication: DIABETIC NEPHROPATHY
     Dosage: UNK
     Route: 048
  8. WARFARIN SODIUM [Concomitant]
     Dosage: UNK
     Route: 048

REACTIONS (1)
  - ATRIAL FIBRILLATION [None]
